FAERS Safety Report 5565401-7 (Version None)
Quarter: 2007Q4

REPORT INFORMATION
  Report Type: 
  Country: None (occurrence: None)
  Receive Date: 20071218
  Receipt Date: 20071206
  Transmission Date: 20080405
  Serious: Yes (Hospitalization)
  Sender: FDA-Public Use
  Company Number: CL-AMGEN-US241193

PATIENT
  Sex: Female
  Weight: 42 kg

DRUGS (10)
  1. PANITUMUMAB [Suspect]
     Indication: COLORECTAL CANCER
     Route: 042
     Dates: start: 20070529
  2. FOLINIC ACID [Concomitant]
     Route: 042
  3. FLUOROURACIL [Concomitant]
     Route: 065
  4. OXALIPLATIN [Concomitant]
     Route: 042
  5. DOMPERIDONE [Concomitant]
     Route: 042
  6. ONDANSETRON [Concomitant]
     Route: 042
  7. DEXAMETHASONE TAB [Concomitant]
     Route: 042
  8. OMEPRAZOLE [Concomitant]
     Route: 065
  9. CLONAZEPAM [Concomitant]
     Route: 065
  10. LEUCOVORIN CALCIUM [Concomitant]
     Route: 065

REACTIONS (1)
  - GASTRIC HAEMORRHAGE [None]
